FAERS Safety Report 14974712 (Version 1)
Quarter: 2018Q2

REPORT INFORMATION
  Report Type: Spontaneous
  Country: US (occurrence: US)
  Receive Date: 20180516
  Receipt Date: 20180516
  Transmission Date: 20180711
  Serious: Yes (Hospitalization, Other)
  Sender: FDA-Public Use
  Company Number: None

PATIENT
  Age: 58 Year
  Sex: Female
  Weight: 85.5 kg

DRUGS (6)
  1. ESTRADIOL. [Concomitant]
     Active Substance: ESTRADIOL
  2. MAGNESIUM [Concomitant]
     Active Substance: MAGNESIUM
  3. EPINEPHRINE ADMINISTERED AT THE HOSPITAL MERCY IN OZARK ARKANSAS [Suspect]
     Active Substance: EPINEPHRINE
     Indication: HYPERSENSITIVITY
     Dates: start: 20180509, end: 20180510
  4. PROBIOTICS [Concomitant]
     Active Substance: PROBIOTICS NOS
  5. MULTIVITAMIN [Concomitant]
     Active Substance: VITAMINS
  6. CALCIUM [Concomitant]
     Active Substance: CALCIUM

REACTIONS (9)
  - Drug ineffective [None]
  - Urticaria [None]
  - Headache [None]
  - Acute myocardial infarction [None]
  - Swollen tongue [None]
  - Chest pain [None]
  - Hypersensitivity [None]
  - Dysphagia [None]
  - Product use issue [None]

NARRATIVE: CASE EVENT DATE: 20180509
